FAERS Safety Report 14571591 (Version 1)
Quarter: 2018Q1

REPORT INFORMATION
  Report Type: Spontaneous
  Country: US (occurrence: US)
  Receive Date: 20180223
  Receipt Date: 20180223
  Transmission Date: 20180509
  Serious: No
  Sender: FDA-Public Use
  Company Number: None

PATIENT
  Age: 39 Year
  Sex: Male

DRUGS (1)
  1. DAPTOMYCIN 500MG VIAL HOSPIRA [Suspect]
     Active Substance: DAPTOMYCIN
     Indication: DECUBITUS ULCER
     Route: 042
     Dates: start: 20180208, end: 20180223

REACTIONS (3)
  - Chills [None]
  - Tremor [None]
  - Infusion related reaction [None]

NARRATIVE: CASE EVENT DATE: 20180221
